FAERS Safety Report 13384716 (Version 1)
Quarter: 2017Q1

REPORT INFORMATION
  Report Type: Spontaneous
  Country: US (occurrence: US)
  Receive Date: 20170329
  Receipt Date: 20170329
  Transmission Date: 20170429
  Serious: Yes (Hospitalization)
  Sender: FDA-Public Use
  Company Number: None

PATIENT
  Age: 63 Year
  Sex: Male
  Weight: 153 kg

DRUGS (12)
  1. MULTIVITAMIN [Concomitant]
     Active Substance: VITAMINS
  2. FENOFIBRATE. [Concomitant]
     Active Substance: FENOFIBRATE
  3. OMEGA 3 [Concomitant]
     Active Substance: OMEGA-3 FATTY ACIDS
  4. PRAMIPEXOLE. [Concomitant]
     Active Substance: PRAMIPEXOLE
  5. IOPAMIDOL [Suspect]
     Active Substance: IOPAMIDOL
     Indication: PRODUCT USED FOR UNKNOWN INDICATION
     Dosage: ?          OTHER FREQUENCY:ONCE;?
     Route: 040
     Dates: start: 20170302, end: 20170302
  6. TIZANIDINE. [Concomitant]
     Active Substance: TIZANIDINE
  7. ASPIRIN. [Concomitant]
     Active Substance: ASPIRIN
  8. IRBESARTAN HCTZ [Concomitant]
     Active Substance: HYDROCHLOROTHIAZIDE\IRBESARTAN
  9. ESCITALOPRAM [Concomitant]
     Active Substance: ESCITALOPRAM OXALATE
  10. PIPERACILLIN/TAZOBACTAM 3.375 [Suspect]
     Active Substance: PIPERACILLIN SODIUM\TAZOBACTAM SODIUM
     Indication: CELLULITIS
     Route: 041
     Dates: start: 20170302, end: 20170305
  11. PRAVASTATIN. [Concomitant]
     Active Substance: PRAVASTATIN
  12. SITAGLIPTAN/METFORMIN [Concomitant]

REACTIONS (4)
  - Tubulointerstitial nephritis [None]
  - Renal tubular necrosis [None]
  - Acute kidney injury [None]
  - Nephropathy toxic [None]

NARRATIVE: CASE EVENT DATE: 20170305
